FAERS Safety Report 12201259 (Version 1)
Quarter: 2016Q1

REPORT INFORMATION
  Report Type: Spontaneous
  Country: US (occurrence: US)
  Receive Date: 20160322
  Receipt Date: 20160322
  Transmission Date: 20160526
  Serious: No
  Sender: FDA-Public Use
  Company Number: US-SA-2015SA073413

PATIENT

DRUGS (2)
  1. ALLEGRA ALLERGY [Suspect]
     Active Substance: FEXOFENADINE HYDROCHLORIDE
     Route: 048
  2. NASACORT [Suspect]
     Active Substance: TRIAMCINOLONE ACETONIDE
     Route: 065

REACTIONS (1)
  - Drug ineffective [Unknown]
